FAERS Safety Report 5154868-4 (Version None)
Quarter: 2006Q4

REPORT INFORMATION
  Report Type: 
  Country: None (occurrence: None)
  Receive Date: 20061121
  Receipt Date: 20041215
  Transmission Date: 20070319
  Serious: Yes (Death, Hospitalization, Other)
  Sender: FDA-Public Use
  Company Number: US-AMGEN-US103430

PATIENT
  Sex: Female
  Weight: 54.5 kg

DRUGS (11)
  1. EPOGEN [Suspect]
     Indication: DIALYSIS
     Route: 042
  2. COUMADIN [Concomitant]
  3. NIFEDIPINE [Concomitant]
  4. DIGOXIN [Concomitant]
  5. PHOSLO [Concomitant]
  6. NEPHRO-VITE [Concomitant]
  7. GLIPIZIDE [Concomitant]
  8. ZANTAC [Concomitant]
  9. ZEMPLAR [Concomitant]
  10. PROTONIX [Concomitant]
  11. NEURONTIN [Concomitant]

REACTIONS (17)
  - ANTI-ERYTHROPOIETIN ANTIBODY POSITIVE [None]
  - BONE MARROW FAILURE [None]
  - CARDIAC ARREST [None]
  - CARDIAC FAILURE CONGESTIVE [None]
  - CATHETER SEPSIS [None]
  - CHEST PAIN [None]
  - CHOLECYSTITIS [None]
  - CONDITION AGGRAVATED [None]
  - DEATH [None]
  - HAEMODIALYSIS [None]
  - HYPERTENSION [None]
  - MENTAL DISORDER [None]
  - MENTAL STATUS CHANGES [None]
  - POST PROCEDURAL COMPLICATION [None]
  - STAPHYLOCOCCAL SEPSIS [None]
  - THERAPEUTIC RESPONSE DECREASED [None]
  - VENOUS THROMBOSIS [None]
